FAERS Safety Report 5113581-X (Version None)
Quarter: 2006Q3

REPORT INFORMATION
  Report Type: 
  Country: None (occurrence: None)
  Receive Date: 20060921
  Receipt Date: 20060921
  Transmission Date: 20061208
  Serious: Yes (Life-Threatening, Hospitalization)
  Sender: FDA-Public Use
  Company Number: None

PATIENT
  Age: 65 Year
  Sex: Male

DRUGS (16)
  1. WARFARIN SODIUM [Suspect]
     Dosage: 5 MG PO BID
     Route: 048
  2. HUMULIN 70/30 [Concomitant]
  3. INUSLIN NPH [Concomitant]
  4. REGULAR INSULIN [Concomitant]
  5. DESIPRAMINE HCL [Concomitant]
  6. FERROUS SULFATE TAB [Concomitant]
  7. METOPROLOL TARTRATE [Concomitant]
  8. TAMSULOSIN HCL [Concomitant]
  9. EXETIMIBE [Concomitant]
  10. VARDENAFIL [Concomitant]
  11. TADALOFIL [Concomitant]
  12. FLUTICASONE PROPIONATE [Concomitant]
  13. ROSUVASTATIN [Concomitant]
  14. ENALAPRIL [Concomitant]
  15. ESOMEPRAZOLE MAGNESIUM [Concomitant]
  16. LIPOIC ACID [Concomitant]

REACTIONS (7)
  - CONTUSION [None]
  - DYSPNOEA [None]
  - EPISTAXIS [None]
  - FATIGUE [None]
  - INTERNATIONAL NORMALISED RATIO INCREASED [None]
  - PROTHROMBIN TIME PROLONGED [None]
  - UPPER GASTROINTESTINAL HAEMORRHAGE [None]
